FAERS Safety Report 4277441-9 (Version None)
Quarter: 2004Q1

REPORT INFORMATION
  Report Type: 
  Country: None (occurrence: None)
  Receive Date: 20040122
  Receipt Date: 20040107
  Transmission Date: 20041129
  Serious: Yes (Other)
  Sender: FDA-Public Use
  Company Number: US-GLAXOSMITHKLINE-A0491919A

PATIENT
  Age: 56 Year
  Sex: Female

DRUGS (2)
  1. PARNATE [Suspect]
     Indication: DEPRESSION
     Dosage: 30MG PER DAY
     Route: 048
     Dates: start: 20031212
  2. MEDROXYPROGESTERONE + ESTROGEN [Concomitant]

REACTIONS (1)
  - EYE REDNESS [None]
